FAERS Safety Report 5825665-9 (Version None)
Quarter: 2008Q3

REPORT INFORMATION
  Report Type: 
  Country: None (occurrence: None)
  Receive Date: 20080729
  Receipt Date: 20080206
  Transmission Date: 20090109
  Serious: No
  Sender: FDA-Public Use
  Company Number: US-BAYER-200810625BCC

PATIENT
  Age: 87 Year
  Sex: Female
  Weight: 58 kg

DRUGS (8)
  1. ALEVE [Suspect]
     Indication: PAIN
     Dosage: TOTAL DAILY DOSE: 220 MG  UNIT DOSE: 220 MG
     Route: 048
     Dates: start: 20080204, end: 20080204
  2. ALEVE [Suspect]
     Dosage: UNIT DOSE: 220 MG
     Route: 048
     Dates: start: 20080205, end: 20080205
  3. ALEVE [Suspect]
     Dosage: TOTAL DAILY DOSE: 220 MG  UNIT DOSE: 220 MG
     Route: 048
     Dates: start: 20080206, end: 20080206
  4. ALEVE [Suspect]
     Route: 048
     Dates: start: 20080207
  5. ZANTAC [Concomitant]
  6. EL-THYROID [Concomitant]
  7. KIRKLAND CALCIUM [Concomitant]
  8. EQUATE ASPIRIN [Concomitant]

REACTIONS (2)
  - COCCYDYNIA [None]
  - CONSTIPATION [None]
